FAERS Safety Report 4497663-1 (Version None)
Quarter: 2004Q4

REPORT INFORMATION
  Report Type: 
  Country: None (occurrence: None)
  Receive Date: 20041108
  Receipt Date: 20041025
  Transmission Date: 20050328
  Serious: Yes (Life-Threatening)
  Sender: FDA-Public Use
  Company Number: US-JNJFOC-20040909726

PATIENT
  Sex: Male
  Weight: 122.47 kg

DRUGS (28)
  1. DURAGESIC [Suspect]
     Route: 062
     Dates: start: 20040101
  2. DURAGESIC [Suspect]
     Route: 062
     Dates: start: 20040101
  3. CLONIDINE HCL [Suspect]
     Route: 062
     Dates: start: 20040920, end: 20040920
  4. OXY IR [Concomitant]
     Indication: PAIN
     Dosage: AS NEEDED
  5. PERCOCET [Concomitant]
     Route: 049
  6. PERCOCET [Concomitant]
     Route: 049
  7. LEXAPRO [Concomitant]
  8. NEURONTIN [Concomitant]
  9. NEURONTIN [Concomitant]
  10. SENOKOT [Concomitant]
     Route: 049
  11. MULTI-VITAMIN [Concomitant]
     Route: 049
  12. MULTI-VITAMIN [Concomitant]
     Route: 049
  13. MULTI-VITAMIN [Concomitant]
     Route: 049
  14. MULTI-VITAMIN [Concomitant]
     Route: 049
  15. MULTI-VITAMIN [Concomitant]
     Route: 049
  16. MULTI-VITAMIN [Concomitant]
     Route: 049
  17. MULTI-VITAMIN [Concomitant]
     Route: 049
  18. MULTI-VITAMIN [Concomitant]
     Route: 049
  19. LOXITANE [Concomitant]
     Dosage: PM
  20. LOXITANE [Concomitant]
  21. LOXITANE [Concomitant]
     Dosage: AM
  22. LASIX [Concomitant]
  23. LASIX [Concomitant]
  24. ABILIFY [Concomitant]
  25. DOXEPIN HCL [Concomitant]
     Dosage: AT BEDTIME
  26. PLAVIX [Concomitant]
  27. AMBIEN [Concomitant]
     Dosage: AT BEDTIME
  28. ATIVAN [Concomitant]
     Dosage: AS NEEDED

REACTIONS (12)
  - APNOEA [None]
  - BLOOD GLUCOSE INCREASED [None]
  - COMA [None]
  - OEDEMA PERIPHERAL [None]
  - OVERDOSE [None]
  - PAIN EXACERBATED [None]
  - RESPIRATORY ARREST [None]
  - SINUS TACHYCARDIA [None]
  - SYNCOPE [None]
  - VENTRICULAR EXTRASYSTOLES [None]
  - WHEEZING [None]
  - WHITE BLOOD CELL COUNT INCREASED [None]
